FAERS Safety Report 10458595 (Version 1)
Quarter: 2014Q3

REPORT INFORMATION
  Report Type: Spontaneous
  Country: US (occurrence: US)
  Receive Date: 20140917
  Receipt Date: 20140917
  Transmission Date: 20150326
  Serious: Yes (Death, Hospitalization)
  Sender: FDA-Public Use
  Company Number: PHHY2014US118765

PATIENT
  Age: 58 Year
  Sex: Female

DRUGS (10)
  1. OXYCODONE [Concomitant]
     Active Substance: OXYCODONE
  2. BUMETANIDE. [Concomitant]
     Active Substance: BUMETANIDE
  3. LEVOTHYROXINE [Concomitant]
     Active Substance: LEVOTHYROXINE
  4. FLURAZEPAM [Concomitant]
     Active Substance: FLURAZEPAM\FLURAZEPAM HYDROCHLORIDE
  5. CICLOSPORIN [Suspect]
     Active Substance: CYCLOSPORINE
     Indication: IMMUNOSUPPRESSION
  6. GABAPENTIN. [Concomitant]
     Active Substance: GABAPENTIN
  7. PREDNISONE. [Concomitant]
     Active Substance: PREDNISONE
  8. COLCHICINE. [Interacting]
     Active Substance: COLCHICINE
     Dosage: 0.6 MG, BID
  9. CLONAZEPAM. [Concomitant]
     Active Substance: CLONAZEPAM
  10. MIRTAZAPINE. [Concomitant]
     Active Substance: MIRTAZAPINE

REACTIONS (9)
  - Pancytopenia [Unknown]
  - Acute leukaemia [Unknown]
  - Multi-organ failure [Unknown]
  - Myelodysplastic syndrome [Unknown]
  - Gout [Unknown]
  - Death [Fatal]
  - Diarrhoea [Unknown]
  - Toxicity to various agents [Unknown]
  - Drug interaction [Unknown]
